FAERS Safety Report 5941463-X (Version None)
Quarter: 2008Q4

REPORT INFORMATION
  Report Type: 
  Country: None (occurrence: None)
  Receive Date: 20081103
  Receipt Date: 20081103
  Transmission Date: 20090506
  Serious: No
  Sender: FDA-Public Use
  Company Number: None

PATIENT
  Age: 66 Year
  Sex: Female

DRUGS (1)
  1. ADVAIR DISKUS 100/50 [Suspect]

REACTIONS (4)
  - CONDITION AGGRAVATED [None]
  - DEVICE FAILURE [None]
  - DYSPNOEA [None]
  - PRODUCT QUALITY ISSUE [None]
